FAERS Safety Report 8064132-1 (Version None)
Quarter: 2012Q1

REPORT INFORMATION
  Report Type: 
  Country: None (occurrence: None)
  Receive Date: 20120123
  Receipt Date: 20111220
  Transmission Date: 20120608
  Serious: Yes (Hospitalization)
  Sender: FDA-Public Use
  Company Number: JP-GLAXOSMITHKLINE-B0770895A

PATIENT
  Age: 63 Year
  Sex: Female

DRUGS (12)
  1. LAMICTAL [Suspect]
     Indication: BIPOLAR DISORDER
     Dosage: 25MG ALTERNATE DAYS
     Route: 048
     Dates: start: 20111111, end: 20111124
  2. YODEL S [Concomitant]
     Route: 048
  3. ISOSORBIDE MONONITRATE [Concomitant]
     Route: 048
  4. DEPAKENE [Concomitant]
     Dosage: 400MG PER DAY
     Route: 048
  5. DILTIAZEM HYDROCHLORIDE [Concomitant]
     Route: 048
  6. NICORANDIL [Concomitant]
     Route: 048
  7. LENDORMIN [Concomitant]
     Route: 048
  8. ALFASULY [Concomitant]
     Route: 048
  9. LAMICTAL [Suspect]
     Dosage: 25MG PER DAY
     Route: 048
     Dates: start: 20111125, end: 20111208
  10. LANIZAC [Concomitant]
     Route: 048
  11. LAMICTAL [Suspect]
     Dosage: 50MG PER DAY
     Route: 048
     Dates: start: 20111209, end: 20111210
  12. ASPIRIN [Concomitant]
     Route: 048

REACTIONS (5)
  - ERYTHEMA [None]
  - DRUG ERUPTION [None]
  - COUGH [None]
  - PYREXIA [None]
  - PRODUCTIVE COUGH [None]
